FAERS Safety Report 17149838 (Version 2)
Quarter: 2020Q3

REPORT INFORMATION
  Report Type: Spontaneous
  Country: CA (occurrence: CA)
  Receive Date: 20191213
  Receipt Date: 20200814
  Transmission Date: 20201102
  Serious: Yes (Death)
  Sender: FDA-Public Use
  Company Number: CA-ASTRAZENECA-2019SF79438

PATIENT
  Age: 63 Year
  Sex: Female

DRUGS (6)
  1. AFINITOR [Concomitant]
     Active Substance: EVEROLIMUS
  2. DEXAMETHASONE. [Concomitant]
     Active Substance: DEXAMETHASONE
     Dosage: 1?2 MG, 1X/DAY EVERY MORNING
  3. FASLODEX [Suspect]
     Active Substance: FULVESTRANT
     Indication: PRODUCT USED FOR UNKNOWN INDICATION
     Dosage: CYCLICAL (250 MG EACH BUTTOCK ON DAY1, 14, 28 THEN EVERY 28 DAYS
     Route: 030
  4. EXEMESTANE. [Concomitant]
     Active Substance: EXEMESTANE
  5. IBRANCE [Suspect]
     Active Substance: PALBOCICLIB
     Indication: BREAST CANCER METASTATIC
     Dosage: CYCLICAL
     Route: 048
     Dates: start: 2018, end: 2018
  6. CESAMET [Concomitant]
     Active Substance: NABILONE

REACTIONS (6)
  - Abdominal distension [Unknown]
  - Abdominal pain [Unknown]
  - Decreased appetite [Not Recovered/Not Resolved]
  - Gastrointestinal pain [Unknown]
  - Nausea [Not Recovered/Not Resolved]
  - Death [Fatal]

NARRATIVE: CASE EVENT DATE: 2018
